FAERS Safety Report 15675629 (Version 3)
Quarter: 2018Q4

REPORT INFORMATION
  Report Type: Spontaneous
  Country: US (occurrence: US)
  Receive Date: 20181130
  Receipt Date: 20181210
  Transmission Date: 20190205
  Serious: Yes (Other)
  Sender: FDA-Public Use
  Company Number: US-009507513-1811USA008670

PATIENT
  Age: 22 Year
  Sex: Female

DRUGS (1)
  1. NEXPLANON [Suspect]
     Active Substance: ETONOGESTREL
     Indication: CONTRACEPTION
     Dosage: DOSAGE FORM, ONCE
     Route: 015
     Dates: start: 20171014, end: 20181016

REACTIONS (5)
  - Pregnancy with implant contraceptive [Recovered/Resolved]
  - Ectopic pregnancy [Unknown]
  - Unintended pregnancy [Recovered/Resolved]
  - Road traffic accident [Recovered/Resolved]
  - Product use issue [Unknown]

NARRATIVE: CASE EVENT DATE: 20171016
